FAERS Safety Report 4503538-1 (Version None)
Quarter: 2004Q4

REPORT INFORMATION
  Report Type: 
  Country: None (occurrence: None)
  Receive Date: 20041117
  Receipt Date: 20040615
  Transmission Date: 20050328
  Serious: Yes (Other)
  Sender: FDA-Public Use
  Company Number: PHBS2004CH08244

PATIENT
  Age: 65 Year
  Sex: Female

DRUGS (6)
  1. TEGRETOL [Suspect]
     Indication: TEMPORAL LOBE EPILEPSY
     Dosage: 600 TO 1200 MG/DAY
     Route: 065
     Dates: start: 19770101
  2. TEGRETOL [Suspect]
     Dosage: 400 MG, TID
     Route: 065
  3. APROVEL [Concomitant]
  4. ZOLOFT [Concomitant]
  5. TEMESTA [Concomitant]
  6. ZOMIG [Concomitant]

REACTIONS (9)
  - DIABETES MELLITUS NON-INSULIN-DEPENDENT [None]
  - FATIGUE [None]
  - HEADACHE [None]
  - HYPOCHLORAEMIA [None]
  - HYPONATRAEMIA [None]
  - MENINGEOMAS SURGERY [None]
  - MENINGIOMA [None]
  - VERTIGO [None]
  - VOMITING [None]
